FAERS Safety Report 5553546-7 (Version None)
Quarter: 2007Q4

REPORT INFORMATION
  Report Type: 
  Country: None (occurrence: None)
  Receive Date: 20071211
  Receipt Date: 20071129
  Transmission Date: 20080405
  Serious: Yes (Life-Threatening, Hospitalization)
  Sender: FDA-Public Use
  Company Number: 2007SP003990

PATIENT
  Age: 87 Year
  Sex: Female

DRUGS (11)
  1. XOPENEX [Suspect]
     Indication: BRONCHITIS CHRONIC
     Dosage: 1.25 MG/3ML; BID; INHALATION
     Route: 055
     Dates: start: 20050101
  2. XOPENEX [Suspect]
     Indication: CHRONIC OBSTRUCTIVE PULMONARY DISEASE
     Dosage: 1.25 MG/3ML; BID; INHALATION
     Route: 055
     Dates: start: 20050101
  3. XOPENEX [Suspect]
     Indication: PNEUMONIA
     Dosage: 1.25 MG/3ML; BID; INHALATION
     Route: 055
     Dates: start: 20050101
  4. ALUPENT [Concomitant]
  5. WARFARIN SODIUM [Concomitant]
  6. TOPROL-XL [Concomitant]
  7. PREDNISONE [Concomitant]
  8. LEXAPRO [Concomitant]
  9. TYLENOL [Concomitant]
  10. ATORVASTATIN [Concomitant]
  11. ALBUTEROL [Concomitant]

REACTIONS (9)
  - BLOOD POTASSIUM DECREASED [None]
  - BLOOD SODIUM INCREASED [None]
  - CEREBROVASCULAR ACCIDENT [None]
  - ESCHERICHIA INFECTION [None]
  - FEELING COLD [None]
  - LUNG INFILTRATION [None]
  - RESPIRATORY DISORDER [None]
  - STAPHYLOCOCCAL INFECTION [None]
  - TREMOR [None]
